FAERS Safety Report 6125312-5 (Version None)
Quarter: 2009Q1

REPORT INFORMATION
  Report Type: 
  Country: None (occurrence: None)
  Receive Date: 20090320
  Receipt Date: 20090313
  Transmission Date: 20090719
  Serious: Yes (Other)
  Sender: FDA-Public Use
  Company Number: IT-JNJFOC-20090303346

PATIENT
  Age: 69 Year
  Sex: Male

DRUGS (7)
  1. LEVOFLOXACIN [Suspect]
     Indication: INFECTION PROPHYLAXIS
     Route: 065
  2. ITRACONAZOLE [Suspect]
     Indication: INFECTION PROPHYLAXIS
     Route: 065
  3. MELPHALAN [Suspect]
     Indication: BONE MARROW TRANSPLANT
     Route: 042
  4. FLUDARABINE PHOSPHATE [Suspect]
     Indication: DRUG USE FOR UNKNOWN INDICATION
     Route: 042
  5. CYCLOPHOSPHAMIDE [Suspect]
     Indication: DRUG USE FOR UNKNOWN INDICATION
     Route: 042
  6. FILGRASTIM [Suspect]
     Indication: DRUG USE FOR UNKNOWN INDICATION
     Route: 065
  7. ACYCLOVIR [Suspect]
     Indication: INFECTION PROPHYLAXIS
     Route: 065

REACTIONS (3)
  - DRUG TOXICITY [None]
  - FEBRILE NEUTROPENIA [None]
  - MUCOSAL INFLAMMATION [None]
